FAERS Safety Report 4943111-4 (Version None)
Quarter: 2006Q1

REPORT INFORMATION
  Report Type: 
  Country: None (occurrence: None)
  Receive Date: 20060314
  Receipt Date: 20050930
  Transmission Date: 20060701
  Serious: Yes (Death)
  Sender: FDA-Public Use
  Company Number: US-MERCK-0510USA01122

PATIENT
  Age: 59 Year
  Sex: Female
  Weight: 94 kg

DRUGS (1)
  1. VIOXX [Suspect]
     Route: 048
     Dates: start: 19990501

REACTIONS (24)
  - ASTHENIA [None]
  - BACK PAIN [None]
  - CARDIOVASCULAR DISORDER [None]
  - CEREBROVASCULAR ACCIDENT [None]
  - CHEST DISCOMFORT [None]
  - DYSPEPSIA [None]
  - DYSPNOEA EXERTIONAL [None]
  - HIP ARTHROPLASTY [None]
  - HYPERTENSION [None]
  - ILEUS [None]
  - KNEE ARTHROPLASTY [None]
  - LIMB INJURY [None]
  - MYOCARDIAL INFARCTION [None]
  - OEDEMA PERIPHERAL [None]
  - PALPITATIONS [None]
  - PULMONARY EMBOLISM [None]
  - RALES [None]
  - RESPIRATORY FAILURE [None]
  - ROTATOR CUFF SYNDROME [None]
  - SOFT TISSUE INFLAMMATION [None]
  - SPINAL LAMINECTOMY [None]
  - TACHYCARDIA [None]
  - URINARY INCONTINENCE [None]
  - WOUND INFECTION [None]
